FAERS Safety Report 6162132-X (Version None)
Quarter: 2009Q2

REPORT INFORMATION
  Report Type: 
  Country: None (occurrence: None)
  Receive Date: 20090421
  Receipt Date: 20090409
  Transmission Date: 20091009
  Serious: Yes (Hospitalization, Other)
  Sender: FDA-Public Use
  Company Number: US-PFIZER INC-2007004469

PATIENT
  Sex: Male
  Weight: 92.99 kg

DRUGS (22)
  1. BLINDED *PLACEBO [Suspect]
     Indication: HIV TEST POSITIVE
     Route: 048
     Dates: start: 20051028
  2. BLINDED MARAVIROC [Suspect]
     Indication: HIV TEST POSITIVE
     Route: 048
     Dates: start: 20051028
  3. CYCLOPHOSPHAMIDE [Concomitant]
     Indication: DIFFUSE LARGE B-CELL LYMPHOMA
     Dosage: UNK MG, AS NEEDED
     Route: 048
     Dates: start: 20010714, end: 20070105
  4. DOXORUBICIN HCL [Concomitant]
     Indication: DIFFUSE LARGE B-CELL LYMPHOMA
     Route: 048
     Dates: start: 20010714, end: 20070108
  5. VINCRISTINE [Concomitant]
     Indication: DIFFUSE LARGE B-CELL LYMPHOMA
     Dates: start: 20010714, end: 20070105
  6. PREDNISONE [Concomitant]
     Indication: DIFFUSE LARGE B-CELL LYMPHOMA
     Dates: start: 20010714, end: 20070105
  7. RITUXAN [Concomitant]
     Indication: DIFFUSE LARGE B-CELL LYMPHOMA
     Dates: start: 20010714, end: 20070105
  8. NORVIR [Concomitant]
     Route: 048
     Dates: start: 20051028
  9. ACETYLSALICYLIC ACID SRT [Concomitant]
     Indication: CHEST PAIN
     Route: 048
     Dates: start: 20000515
  10. METFORMIN HCL [Concomitant]
     Indication: DIABETES MELLITUS
     Dosage: 1000 MG, 2X/DAY
     Route: 048
     Dates: start: 20020408
  11. IBUPROFEN [Concomitant]
     Indication: BACK PAIN
     Dosage: 800 MG, AS NEEDED
     Route: 048
     Dates: start: 20051118
  12. CYCLOBENZAPRINE [Concomitant]
     Indication: BACK PAIN
     Dosage: 10 MG, AS NEEDED
     Route: 048
     Dates: start: 20050916
  13. TRIAMCINOLONE [Concomitant]
     Indication: RASH
     Dosage: UNK
     Route: 061
     Dates: start: 20060119
  14. DOLASETRON [Concomitant]
     Indication: NAUSEA
     Route: 048
     Dates: start: 20060714, end: 20070108
  15. INSULATARD NPH HUMAN [Concomitant]
     Indication: HYPERGLYCAEMIA
     Route: 058
     Dates: start: 20060719
  16. REYATAZ [Concomitant]
     Route: 048
     Dates: start: 20051028
  17. VIREAD [Concomitant]
     Route: 048
     Dates: start: 20051028
  18. EPZICOM [Concomitant]
     Route: 048
     Dates: start: 20051028
  19. METOCLOPRAMIDE [Concomitant]
     Route: 048
  20. CENTRUM [Concomitant]
     Dosage: UNK
  21. ASPIRIN [Concomitant]
     Dosage: 81 MG, 1X/DAY
  22. GLIPIZIDE [Concomitant]
     Dosage: 10 MG, 1X/DAY
     Route: 048

REACTIONS (1)
  - FEBRILE NEUTROPENIA [None]
